FAERS Safety Report 4526384-1 (Version None)
Quarter: 2004Q4

REPORT INFORMATION
  Report Type: 
  Country: None (occurrence: None)
  Receive Date: 20041214
  Receipt Date: 20041108
  Transmission Date: 20050328
  Serious: Yes (Death, Life-Threatening, Hospitalization, Other)
  Sender: FDA-Public Use
  Company Number: US-BRISTOL-MYERS SQUIBB COMPANY-12758868

PATIENT
  Age: 79 Year
  Sex: Male

DRUGS (3)
  1. ERBITUX [Suspect]
     Indication: COLON CANCER
     Dosage: 1ST DOSE 05-MAY-04 (785 MG), REC'D 26 ML, THERAPY DURATION 8 MINS.
     Route: 042
     Dates: start: 20040505, end: 20040505
  2. BENADRYL [Concomitant]
     Indication: PREMEDICATION
     Route: 042
     Dates: start: 20040505, end: 20040505
  3. RADIATION THERAPY [Concomitant]
     Indication: PAIN

REACTIONS (9)
  - BLOOD PRESSURE DECREASED [None]
  - CAROTID PULSE DECREASED [None]
  - CHILLS [None]
  - COLD SWEAT [None]
  - COLON CANCER [None]
  - COMA [None]
  - PALLOR [None]
  - RETCHING [None]
  - TACHYCARDIA [None]
